FAERS Safety Report 8762411 (Version 5)
Quarter: 2012Q4

REPORT INFORMATION
  Report Type: 
  Country: US (occurrence: US)
  Receive Date: 20120829
  Receipt Date: 20121022
  Transmission Date: 20130627
  Serious: No
  Sender: FDA-Public Use
  Company Number: US-PFIZER INC-2012210093

PATIENT
  Age: 74 Year
  Sex: Female
  Weight: 59 kg

DRUGS (3)
  1. ADVIL PM [Suspect]
     Indication: INSOMNIA
     Dosage: 2 tablets of 200mg, daily at night
     Route: 048
     Dates: start: 201208
  2. ADVIL PM [Suspect]
     Indication: BACK PAIN
  3. METFORMIN [Concomitant]
     Indication: DIABETES MELLITUS
     Dosage: 500 mg, daily

REACTIONS (1)
  - Drug ineffective [Unknown]
